FAERS Safety Report 16968471 (Version 2)
Quarter: 2019Q4

REPORT INFORMATION
  Report Type: Report from Study
  Country: US (occurrence: US)
  Receive Date: 20191029
  Receipt Date: 20191206
  Transmission Date: 20200122
  Serious: Yes (Hospitalization)
  Sender: FDA-Public Use
  Company Number: US-ROCHE-2447640

PATIENT
  Sex: Male

DRUGS (31)
  1. NORVASC [Concomitant]
     Active Substance: AMLODIPINE BESYLATE
  2. VEMURAFENIB. [Suspect]
     Active Substance: VEMURAFENIB
     Indication: POORLY DIFFERENTIATED THYROID CARCINOMA
  3. PACLITAXEL. [Suspect]
     Active Substance: PACLITAXEL
     Indication: POORLY DIFFERENTIATED THYROID CARCINOMA
  4. ELIQUIS [Concomitant]
     Active Substance: APIXABAN
  5. PHENERGAN [Concomitant]
     Active Substance: PROMETHAZINE HYDROCHLORIDE
  6. SYNTHROID [Concomitant]
     Active Substance: LEVOTHYROXINE SODIUM
  7. FLOMAX [Concomitant]
     Active Substance: TAMSULOSIN HYDROCHLORIDE
  8. ALEVE [Concomitant]
     Active Substance: NAPROXEN SODIUM
  9. COBIMETINIB. [Suspect]
     Active Substance: COBIMETINIB
     Indication: ANAPLASTIC THYROID CANCER
     Route: 048
  10. COBIMETINIB. [Suspect]
     Active Substance: COBIMETINIB
     Indication: POORLY DIFFERENTIATED THYROID CARCINOMA
  11. BEVACIZUMAB. [Suspect]
     Active Substance: BEVACIZUMAB
     Indication: ANAPLASTIC THYROID CANCER
     Route: 042
  12. PACERONE [Concomitant]
     Active Substance: AMIODARONE HYDROCHLORIDE
  13. LIPITOR [Concomitant]
     Active Substance: ATORVASTATIN CALCIUM
  14. CARAFATE [Concomitant]
     Active Substance: SUCRALFATE
  15. ULTRAM [Concomitant]
     Active Substance: TRAMADOL HYDROCHLORIDE
  16. NICOTINE. [Concomitant]
     Active Substance: NICOTINE
     Dosage: DIP
     Route: 065
  17. ATEZOLIZUMAB. [Suspect]
     Active Substance: ATEZOLIZUMAB
     Indication: POORLY DIFFERENTIATED THYROID CARCINOMA
  18. PACLITAXEL. [Suspect]
     Active Substance: PACLITAXEL
     Indication: ANAPLASTIC THYROID CANCER
     Route: 042
  19. ELIQUIS [Suspect]
     Active Substance: APIXABAN
     Indication: ANAPLASTIC THYROID CANCER
     Route: 065
  20. ELIQUIS [Suspect]
     Active Substance: APIXABAN
     Indication: POORLY DIFFERENTIATED THYROID CARCINOMA
  21. AMBIEN [Concomitant]
     Active Substance: ZOLPIDEM TARTRATE
  22. BEVACIZUMAB. [Suspect]
     Active Substance: BEVACIZUMAB
     Indication: POORLY DIFFERENTIATED THYROID CARCINOMA
  23. IMDUR [Concomitant]
     Active Substance: ISOSORBIDE MONONITRATE
  24. VEMURAFENIB. [Suspect]
     Active Substance: VEMURAFENIB
     Indication: ANAPLASTIC THYROID CANCER
     Route: 048
  25. PLAVIX [Concomitant]
     Active Substance: CLOPIDOGREL BISULFATE
  26. ATEZOLIZUMAB. [Suspect]
     Active Substance: ATEZOLIZUMAB
     Indication: ANAPLASTIC THYROID CANCER
     Route: 042
  27. NAB-PACLITAXEL [Suspect]
     Active Substance: PACLITAXEL
     Indication: ANAPLASTIC THYROID CANCER
     Route: 042
  28. NAB-PACLITAXEL [Suspect]
     Active Substance: PACLITAXEL
     Indication: POORLY DIFFERENTIATED THYROID CARCINOMA
  29. VALIUM [Concomitant]
     Active Substance: DIAZEPAM
  30. ESOMEPRAZOLE. [Concomitant]
     Active Substance: ESOMEPRAZOLE MAGNESIUM
  31. FLONASE [Concomitant]
     Active Substance: FLUTICASONE PROPIONATE

REACTIONS (1)
  - Haemoptysis [Unknown]

NARRATIVE: CASE EVENT DATE: 20191015
